FAERS Safety Report 9292741 (Version 1)
Quarter: 2013Q2

REPORT INFORMATION
  Report Type: Report from Study
  Country: CA (occurrence: CA)
  Receive Date: 20130516
  Receipt Date: 20130516
  Transmission Date: 20140414
  Serious: Yes (Hospitalization)
  Sender: FDA-Public Use
  Company Number: CA-JNJFOC-20130418084

PATIENT
  Age: 63 Year
  Sex: Female
  Weight: 111 kg

DRUGS (20)
  1. REMICADE [Suspect]
     Indication: POLYARTERITIS NODOSA
     Route: 042
  2. REMICADE [Suspect]
     Indication: POLYARTERITIS NODOSA
     Route: 042
     Dates: start: 20130425
  3. SYNTHROID [Concomitant]
     Route: 065
  4. SYMBICORT [Concomitant]
     Route: 065
  5. NOVOLIN NPH INSULIN [Concomitant]
     Route: 065
  6. PENTASA [Concomitant]
     Route: 065
  7. LASIX [Concomitant]
     Route: 065
  8. B12 INJECTION [Concomitant]
     Route: 065
  9. MELOXICAM [Concomitant]
     Route: 065
  10. LOPERAMID [Concomitant]
     Route: 065
  11. ELAVIL [Concomitant]
     Route: 065
  12. RAMIPRIL [Concomitant]
     Route: 065
  13. CIPRO [Concomitant]
     Indication: VASCULITIS
     Route: 065
  14. METFORMIN [Concomitant]
     Route: 065
  15. GLICLAZIDE [Concomitant]
     Route: 065
  16. WARFARIN [Concomitant]
     Route: 065
  17. ATENOLOL [Concomitant]
     Route: 065
  18. TOLOXIN [Concomitant]
     Route: 065
  19. TERBUTALINE SULPHATE [Concomitant]
     Route: 065
  20. VENTOLIN [Concomitant]
     Route: 065

REACTIONS (3)
  - Hernia [Unknown]
  - Blood glucose decreased [Recovered/Resolved]
  - Off label use [Unknown]
